FAERS Safety Report 16314461 (Version 1)
Quarter: 2019Q2

REPORT INFORMATION
  Report Type: Report from Study
  Country: IT (occurrence: IT)
  Receive Date: 20190515
  Receipt Date: 20190515
  Transmission Date: 20190711
  Serious: Yes (Other)
  Sender: FDA-Public Use
  Company Number: IT-TEVA-2019-IT-1048383

PATIENT
  Sex: Male

DRUGS (2)
  1. FLUXARTEN [Concomitant]
     Indication: HEADACHE
     Dosage: 2 CYCLES OF 30 DAYS
     Route: 048
  2. COPAXONE [Suspect]
     Active Substance: GLATIRAMER ACETATE
     Indication: MULTIPLE SCLEROSIS
     Dosage: 20 MILLIGRAM/MILLILITERS DAILY;
     Route: 058
     Dates: start: 201411, end: 20190419

REACTIONS (1)
  - Multiple sclerosis [Not Recovered/Not Resolved]
